FAERS Safety Report 4453569-5 (Version None)
Quarter: 2004Q3

REPORT INFORMATION
  Report Type: 
  Country: None (occurrence: None)
  Receive Date: 20040903
  Receipt Date: 20040122
  Transmission Date: 20050211
  Serious: Yes (Other)
  Sender: FDA-Public Use
  Company Number: 2003184026US

PATIENT
  Age: 34 Year
  Sex: Female
  Weight: 50.3 kg

DRUGS (1)
  1. CYTOTEC [Suspect]
     Dates: start: 20000701

REACTIONS (1)
  - INTRA-UTERINE DEATH [None]
